FAERS Safety Report 5271948-3 (Version None)
Quarter: 2007Q1

REPORT INFORMATION
  Report Type: 
  Country: None (occurrence: None)
  Receive Date: 20061219
  Receipt Date: 20060919
  Transmission Date: 20070707
  Serious: Yes (Other)
  Sender: FDA-Public Use
  Company Number: US-JNJFOC-20060105222

PATIENT
  Sex: Female

DRUGS (15)
  1. ORTHO EVRA [Suspect]
     Indication: CONTRACEPTION
     Dosage: TRANSDERMAL
     Route: 062
     Dates: start: 20030301, end: 20041101
  2. FLONASE [Concomitant]
  3. PENICILLIN-VK [Concomitant]
  4. ALLEGRA [Concomitant]
  5. CLARITIN [Concomitant]
  6. ERYTHROMYCIN [Concomitant]
  7. COUGH MEDICINE (COUGH AND COLD PREPARATIONS) [Concomitant]
  8. AZITHROMYCIN [Concomitant]
  9. METRYL (METRONIDAZOLE) [Concomitant]
  10. ANTIVERT [Concomitant]
  11. AUGMENTIN '125' [Concomitant]
  12. AMOXICILLIN [Concomitant]
  13. CIPROFLOXACIN (CIPRFLOXACIN) [Concomitant]
  14. PHENERGAN (PROMETHAZINE HYDROCHLORIDE) [Concomitant]
  15. NAPROXEN SODIUM [Concomitant]

REACTIONS (1)
  - THROMBOSIS [None]
